FAERS Safety Report 8993583 (Version 1)
Quarter: 2013Q1

REPORT INFORMATION
  Report Type: Other
  Country: DE (occurrence: DE)
  Receive Date: 20130102
  Receipt Date: 20130102
  Transmission Date: 20140127
  Serious: Yes (Congenital Anomaly, Other)
  Sender: FDA-Public Use
  Company Number: DE-NICOBRDEVP-2012-22807

PATIENT
  Sex: Male
  Weight: 1 kg

DRUGS (3)
  1. MORPHINE SULFATE (UNKNOWN) [Suspect]
     Indication: ARTHRITIS
     Dosage: 40 MG, DAILY
     Route: 064
     Dates: start: 20091225, end: 20100729
  2. ADALAT [Concomitant]
     Indication: GESTATIONAL HYPERTENSION
     Dosage: UNK
     Route: 064
     Dates: start: 20100726, end: 20100729
  3. METHYLDOPA [Concomitant]
     Indication: GESTATIONAL HYPERTENSION
     Dosage: 750 MG, DAILY
     Route: 064

REACTIONS (8)
  - Patent ductus arteriosus [Unknown]
  - Atrial septal defect [Unknown]
  - Ventricular septal defect [Unknown]
  - Right aortic arch [Not Recovered/Not Resolved]
  - Neonatal respiratory distress syndrome [Recovered/Resolved]
  - Apnoea neonatal [Recovered/Resolved]
  - Bradycardia neonatal [Recovered/Resolved]
  - Cryptorchism [Unknown]
